FAERS Safety Report 6373169-X (Version None)
Quarter: 2009Q3

REPORT INFORMATION
  Report Type: 
  Country: None (occurrence: None)
  Receive Date: 20090924
  Receipt Date: 20090107
  Transmission Date: 20100115
  Serious: Yes (Life-Threatening, Hospitalization)
  Sender: FDA-Public Use
  Company Number: US-ASTRAZENECA-2009UW00646

PATIENT
  Age: 60 Year
  Sex: Male

DRUGS (1)
  1. SEROQUEL [Suspect]
     Indication: SUICIDE ATTEMPT
     Route: 048

REACTIONS (4)
  - AGGRESSION [None]
  - OVERDOSE [None]
  - SOMNOLENCE [None]
  - TACHYCARDIA [None]
